FAERS Safety Report 13286443 (Version 1)
Quarter: 2017Q1

REPORT INFORMATION
  Report Type: Report from Study
  Country: None (occurrence: BR)
  Receive Date: 20170301
  Receipt Date: 20170301
  Transmission Date: 20170428
  Serious: Yes (Hospitalization)
  Sender: FDA-Public Use
  Company Number: BR-ABBVIE-17P-020-1888747-00

PATIENT
  Age: 59 Year
  Sex: Female
  Weight: 75 kg

DRUGS (2)
  1. HUMIRA [Suspect]
     Active Substance: ADALIMUMAB
     Indication: CROHN^S DISEASE
     Route: 058
     Dates: start: 20161017, end: 20161201
  2. OMEPRAZOLE. [Concomitant]
     Active Substance: OMEPRAZOLE
     Indication: GASTRIC DISORDER
     Route: 048
     Dates: start: 201606

REACTIONS (7)
  - Kidney infection [Recovering/Resolving]
  - Renal pain [Recovering/Resolving]
  - Urinary tract infection bacterial [Recovering/Resolving]
  - Vitamin D deficiency [Unknown]
  - Chromaturia [Recovering/Resolving]
  - Weight increased [Unknown]
  - pH urine abnormal [Unknown]

NARRATIVE: CASE EVENT DATE: 201612
